FAERS Safety Report 21332526 (Version 1)
Quarter: 2022Q3

REPORT INFORMATION
  Report Type: Spontaneous
  Country: US (occurrence: US)
  Receive Date: 20220914
  Receipt Date: 20220914
  Transmission Date: 20221026
  Serious: No
  Sender: FDA-Public Use
  Company Number: US-drreddys-SPO/USA/22/0154184

PATIENT
  Age: 31 Year
  Sex: Female

DRUGS (1)
  1. ZENATANE [Suspect]
     Active Substance: ISOTRETINOIN
     Indication: Acne
     Dosage: RMA ISSUE DATE: 16 APRIL 2022 09:41:14 AM, 25 MAY 2022 08:39:20 AM, 02 JUNE 2022 03:22:56 PM, 13 JUL

REACTIONS (1)
  - Treatment noncompliance [Unknown]
